FAERS Safety Report 18391480 (Version 2)
Quarter: 2020Q4

REPORT INFORMATION
  Report Type: Spontaneous
  Country: US (occurrence: US)
  Receive Date: 20201016
  Receipt Date: 20201112
  Transmission Date: 20210114
  Serious: Yes (Other)
  Sender: FDA-Public Use
  Company Number: NVSC2020US273919

PATIENT
  Sex: Female

DRUGS (1)
  1. PIQRAY [Suspect]
     Active Substance: ALPELISIB
     Indication: BREAST CANCER FEMALE
     Dosage: 2 DF, QD
     Route: 048

REACTIONS (4)
  - Headache [Recovered/Resolved with Sequelae]
  - Metastases to abdominal wall [Unknown]
  - Metastases to pancreas [Unknown]
  - Acute kidney injury [Unknown]
